FAERS Safety Report 13772257 (Version 1)
Quarter: 2017Q3

REPORT INFORMATION
  Report Type: Spontaneous
  Country: NL (occurrence: NL)
  Receive Date: 20170720
  Receipt Date: 20170720
  Transmission Date: 20171127
  Serious: Yes (Death, Other)
  Sender: FDA-Public Use
  Company Number: NL-PFIZER INC-2017310249

PATIENT
  Age: 43 Year
  Sex: Female

DRUGS (3)
  1. CYCLOPHOSPHAMIDE. [Suspect]
     Active Substance: CYCLOPHOSPHAMIDE
     Indication: BREAST CANCER
     Dosage: 3000 MG/M2, UNK
     Dates: start: 201406
  2. DOXORUBICIN HCL [Suspect]
     Active Substance: DOXORUBICIN HYDROCHLORIDE
     Indication: BREAST CANCER
     Dosage: 300 MG/M2, UNK
     Dates: start: 201406
  3. DOCETAXEL. [Suspect]
     Active Substance: DOCETAXEL
     Indication: BREAST CANCER
     Dosage: 450 MG/M2, UNK
     Dates: start: 201406

REACTIONS (1)
  - Cardiomyopathy [Unknown]
